FAERS Safety Report 9939093 (Version 1)
Quarter: 2014Q1

REPORT INFORMATION
  Report Type: Report from Study
  Country: US (occurrence: US)
  Receive Date: 20140303
  Receipt Date: 20140303
  Transmission Date: 20141002
  Serious: No
  Sender: FDA-Public Use
  Company Number: US-ABBVIE-13P-163-1032926-00

PATIENT
  Age: 53 Year
  Sex: Female

DRUGS (12)
  1. HUMIRA [Suspect]
     Indication: PSORIATIC ARTHROPATHY
     Route: 058
     Dates: start: 201207
  2. NABUMETONE [Concomitant]
     Indication: ARTHRITIS
  3. GABAPENTIN [Concomitant]
     Indication: MIGRAINE
  4. TOPAMAX [Concomitant]
     Indication: MIGRAINE
  5. METHOTREXATE [Concomitant]
     Indication: PRODUCT USED FOR UNKNOWN INDICATION
     Dosage: THINKS IT IS 1CC WEEKLY ON FRIDAYS
     Route: 050
  6. ZOLPIDEM [Concomitant]
     Indication: INSOMNIA
     Dosage: AT NIGHT
  7. XANAX [Concomitant]
     Indication: ANXIETY
  8. WATER PILL [Concomitant]
     Indication: SWELLING
     Dosage: TAKES APPROXIMATELY EVERY OTHER DAY
  9. NEXIUM [Concomitant]
     Indication: GASTRIC DISORDER
  10. NEXIUM [Concomitant]
     Indication: GASTROOESOPHAGEAL REFLUX DISEASE
  11. SOMA [Concomitant]
     Indication: BACK PAIN
     Dosage: UP TO 3 TABS DAILY
  12. BUTORPHANOL TARTRATE [Concomitant]
     Indication: MIGRAINE

REACTIONS (1)
  - Nasopharyngitis [Not Recovered/Not Resolved]
